FAERS Safety Report 16434109 (Version 1)
Quarter: 2019Q2

REPORT INFORMATION
  Report Type: Spontaneous
  Country: US (occurrence: US)
  Receive Date: 20190614
  Receipt Date: 20190614
  Transmission Date: 20190711
  Serious: No
  Sender: FDA-Public Use
  Company Number: US-JNJFOC-20190601992

PATIENT
  Sex: Male
  Weight: 16.33 kg

DRUGS (3)
  1. ZYRTEC [Suspect]
     Active Substance: CETIRIZINE HYDROCHLORIDE
     Indication: APPLICATION SITE RASH
     Route: 048
     Dates: start: 2019
  2. NEUTROGENA BEACH DEFENSE WATER SUN PROTECT SUNSCRN LTN SPF70 6.7OZ [Concomitant]
     Indication: PROPHYLAXIS AGAINST SOLAR RADIATION
     Dosage: APPLIED LIBERALLY TO CHEST, NECK, ARMS AND LEGS ONCE TIME
     Route: 061
     Dates: start: 20190522
  3. ZYRTEC [Suspect]
     Active Substance: CETIRIZINE HYDROCHLORIDE
     Route: 048

REACTIONS (2)
  - Product use in unapproved indication [Unknown]
  - Off label use [Unknown]

NARRATIVE: CASE EVENT DATE: 2019
